FAERS Safety Report 5654929-7 (Version None)
Quarter: 2008Q1

REPORT INFORMATION
  Report Type: 
  Country: None (occurrence: None)
  Receive Date: 20080307
  Receipt Date: 20070912
  Transmission Date: 20080703
  Serious: No
  Sender: FDA-Public Use
  Company Number: A0681457A

PATIENT
  Age: 74 Year
  Sex: Female

DRUGS (2)
  1. REQUIP [Suspect]
     Indication: RESTLESS LEGS SYNDROME
     Dosage: .25MG PER DAY
     Route: 048
     Dates: start: 20070501
  2. PREDNISOLONE [Concomitant]

REACTIONS (2)
  - ILL-DEFINED DISORDER [None]
  - RESTLESS LEGS SYNDROME [None]
